FAERS Safety Report 8550210-7 (Version None)
Quarter: 2012Q3

REPORT INFORMATION
  Report Type: 
  Country: None (occurrence: None)
  Receive Date: 20120730
  Receipt Date: 20120720
  Transmission Date: 20120928
  Serious: Yes (Hospitalization, Other)
  Sender: FDA-Public Use
  Company Number: US-ASTRAZENECA-2012SE40501

PATIENT
  Age: 74 Year
  Sex: Male
  Weight: 68 kg

DRUGS (1)
  1. SYMBICORT [Suspect]
     Dosage: TWO TIMES A DAY
     Route: 055

REACTIONS (2)
  - NEOPLASM MALIGNANT [None]
  - GALLBLADDER DISORDER [None]
